FAERS Safety Report 7648057-9 (Version None)
Quarter: 2011Q3

REPORT INFORMATION
  Report Type: 
  Country: None (occurrence: None)
  Receive Date: 20110801
  Receipt Date: 20110725
  Transmission Date: 20111222
  Serious: Yes (Hospitalization, Other)
  Sender: FDA-Public Use
  Company Number: US-PFIZER INC-2010092631

PATIENT
  Sex: Female
  Weight: 63.946 kg

DRUGS (26)
  1. CARDIZEM [Interacting]
     Dosage: UNK
  2. DEPAKOTE [Interacting]
     Indication: CONVULSION
     Dosage: UNK
     Dates: start: 19960101
  3. CIPROFLOXACIN [Interacting]
     Dosage: UNK
  4. REGLAN [Interacting]
     Dosage: UNK
  5. ATACAND [Interacting]
  6. CLONIDINE [Concomitant]
     Indication: BLOOD PRESSURE ABNORMAL
     Dosage: 0.5 MG, 3X/DAY
     Route: 048
  7. DILANTIN [Interacting]
     Dosage: UNK
     Dates: start: 19960101
  8. AVAPRO [Interacting]
     Indication: HYPERTENSION
     Dosage: UNK
  9. HYDROCHLOROTHIAZIDE [Interacting]
     Dosage: UNK
  10. ATACAND [Interacting]
     Dosage: 32 MG, UNK
  11. LIDOCAINE HYDROCHLORIDE [Suspect]
     Indication: INGROWING NAIL
     Dates: start: 20100513, end: 20100513
  12. NORVASC [Interacting]
     Dosage: 5 MG,DAILY
     Dates: start: 19970101
  13. LISINOPRIL [Interacting]
     Dosage: UNK
  14. MACROBID [Interacting]
     Dosage: UNK
  15. VALSARTAN [Interacting]
     Dosage: UNK
  16. NORVASC [Interacting]
     Indication: HYPERTENSION
     Dosage: 2.5 MG, 1X/DAY
     Dates: start: 19950101
  17. XANAX [Interacting]
     Dosage: UNK
  18. LOSARTAN POTASSIUM [Interacting]
     Dosage: UNK
  19. NEBIVOLOL HCL [Interacting]
     Dosage: UNK
  20. NORVASC [Interacting]
     Dosage: 5 MG, 2X/DAY
     Dates: start: 20100101
  21. FUROSEMIDE [Interacting]
     Dosage: UNK
  22. LEVAQUIN [Interacting]
     Dosage: UNK
  23. BENICAR [Interacting]
     Indication: HYPERTENSION
     Dosage: UNK
  24. FUROSEMIDE [Interacting]
  25. BACTRIM [Interacting]
     Dosage: UNK
  26. LEVOTHYROXINE SODIUM [Concomitant]

REACTIONS (15)
  - BURNING SENSATION [None]
  - CYSTITIS [None]
  - ARTERIOGRAM CORONARY ABNORMAL [None]
  - HEADACHE [None]
  - LOSS OF CONSCIOUSNESS [None]
  - INGROWING NAIL [None]
  - WEIGHT DECREASED [None]
  - HYPERTENSION [None]
  - FULL BLOOD COUNT DECREASED [None]
  - TOE OPERATION [None]
  - PALPITATIONS [None]
  - GASTRIC DISORDER [None]
  - BLOOD COUNT ABNORMAL [None]
  - CHOLECYSTECTOMY [None]
  - DIZZINESS [None]
